FAERS Safety Report 23503366 (Version 2)
Quarter: 2024Q1

REPORT INFORMATION
  Report Type: Report from Study
  Country: CA (occurrence: CA)
  Receive Date: 20240208
  Receipt Date: 20240308
  Transmission Date: 20240410
  Serious: Yes (Other)
  Sender: FDA-Public Use
  Company Number: CA-JNJFOC-20240182561

PATIENT
  Age: 14 Year
  Sex: Male
  Weight: 61 kg

DRUGS (1)
  1. REMICADE [Suspect]
     Active Substance: INFLIXIMAB
     Indication: Crohn^s disease
     Dosage: WEEK 0 ORDERED 5MG/KG, (ROUNDING TO COMPLETE THE VIAL TO TO GET 400MG) STARTING AT WEEK 2 DOSE INCRE
     Route: 041
     Dates: start: 20240131

REACTIONS (3)
  - Crohn^s disease [Unknown]
  - Fistula [Unknown]
  - Off label use [Unknown]

NARRATIVE: CASE EVENT DATE: 20240101
